FAERS Safety Report 4448812-2 (Version None)
Quarter: 2004Q3

REPORT INFORMATION
  Report Type: 
  Country: None (occurrence: None)
  Receive Date: 20040909
  Receipt Date: 20040907
  Transmission Date: 20050211
  Serious: Yes (Other)
  Sender: FDA-Public Use
  Company Number: 2004-07-0963

PATIENT
  Sex: Male

DRUGS (6)
  1. RIBAVIRIN [Suspect]
     Indication: HEPATITIS C
     Dosage: 800 MG QD ORAL
     Route: 048
     Dates: start: 20040101, end: 20040601
  2. INFERGEN [Suspect]
     Indication: HEPATITIS C
     Dosage: 15 MCG QD SUBCUTANEOUS
     Route: 058
     Dates: start: 20040101, end: 20040601
  3. PEGASYS [Suspect]
     Indication: HEPATITIS C
  4. RIBAVIRIN [Suspect]
     Indication: HEPATITIS C
  5. THYROID TAB [Concomitant]
  6. REBETOL [Suspect]
     Indication: HEPATITIS C
     Dosage: 800 MG QD ORAL
     Route: 048
     Dates: start: 20040224, end: 20040715

REACTIONS (4)
  - AMNESIA [None]
  - ENZYME ABNORMALITY [None]
  - MOOD SWINGS [None]
  - SUICIDAL IDEATION [None]
